FAERS Safety Report 10022395 (Version 1)
Quarter: 2014Q1

REPORT INFORMATION
  Report Type: Spontaneous
  Country: US (occurrence: US)
  Receive Date: 20140319
  Receipt Date: 20140319
  Transmission Date: 20141002
  Serious: Yes (Other)
  Sender: FDA-Public Use
  Company Number: CHPA2014US004106

PATIENT
  Sex: Female

DRUGS (1)
  1. VOLTAREN GEL [Suspect]
     Dosage: UNK
     Route: 061
     Dates: start: 20140313

REACTIONS (3)
  - Gait disturbance [Unknown]
  - Burning sensation [Unknown]
  - Drug administered at inappropriate site [Unknown]
